FAERS Safety Report 10206831 (Version 1)
Quarter: 2014Q2

REPORT INFORMATION
  Report Type: Spontaneous
  Country: US (occurrence: None)
  Receive Date: 20140528
  Receipt Date: 20140528
  Transmission Date: 20141212
  Serious: No
  Sender: FDA-Public Use
  Company Number: None

PATIENT
  Age: 53 Year
  Sex: Male
  Weight: 90.72 kg

DRUGS (1)
  1. HUMIRA 40 MG [Suspect]
     Indication: CROHN^S DISEASE
     Dosage: 40MG/BI-WEEKLY BIWEEKLY GIVEN INTO/UNDER THE SKIN
     Dates: start: 20121221, end: 20130720

REACTIONS (4)
  - Psoriatic arthropathy [None]
  - Nail psoriasis [None]
  - Psoriasis [None]
  - Treatment failure [None]
